FAERS Safety Report 24370740 (Version 2)
Quarter: 2024Q4

REPORT INFORMATION
  Report Type: Spontaneous
  Country: IT (occurrence: IT)
  Receive Date: 20240927
  Receipt Date: 20241007
  Transmission Date: 20250115
  Serious: Yes (Hospitalization, Other)
  Sender: NOVARTIS
  Company Number: IT-002147023-NVSC2024IT191741

PATIENT
  Sex: Male

DRUGS (4)
  1. COSENTYX [Suspect]
     Active Substance: SECUKINUMAB
     Indication: Product used for unknown indication
     Dosage: UNK
     Route: 065
     Dates: start: 202409
  2. COSENTYX [Suspect]
     Active Substance: SECUKINUMAB
     Dosage: UNK 1ST ADMINISTRATION 30 AUG (TWO 150 MG, PENS)
     Route: 065
  3. COSENTYX [Suspect]
     Active Substance: SECUKINUMAB
     Dosage: UNK 2ND ADMINISTRATION 06 SEP (SAME MODALITY)
     Route: 065
  4. COSENTYX [Suspect]
     Active Substance: SECUKINUMAB
     Dosage: UNK 3RD ADMINISTRATION 13 SEP (SAME MODALITY)
     Route: 065

REACTIONS (1)
  - Acute myocardial infarction [Unknown]
